FAERS Safety Report 12313369 (Version 1)
Quarter: 2016Q2

REPORT INFORMATION
  Report Type: Spontaneous
  Country: US (occurrence: None)
  Receive Date: 20160427
  Receipt Date: 20160427
  Transmission Date: 20160815
  Serious: Yes (Disabling)
  Sender: FDA-Public Use
  Company Number: None

PATIENT
  Age: 58 Year
  Sex: Male
  Weight: 95.26 kg

DRUGS (8)
  1. TRAZODONE [Concomitant]
     Active Substance: TRAZODONE HYDROCHLORIDE
  2. PREDNISOLE [Concomitant]
  3. MILK THISTLE [Concomitant]
     Active Substance: MILK THISTLE
  4. SYMBICORT [Suspect]
     Active Substance: BUDESONIDE\FORMOTEROL FUMARATE DIHYDRATE
     Indication: CHRONIC OBSTRUCTIVE PULMONARY DISEASE
     Dosage: 120 PUFF(S) TWICE A DAY INHALATION
     Route: 055
     Dates: start: 20151116, end: 20160307
  5. TOBRAMYCIN. [Concomitant]
     Active Substance: TOBRAMYCIN
  6. LISINOPRIL/HCTZ [Concomitant]
     Active Substance: HYDROCHLOROTHIAZIDE\LISINOPRIL
  7. MULTI VITAMIN [Concomitant]
     Active Substance: VITAMINS
  8. SODIUM CHLORIDE. [Concomitant]
     Active Substance: SODIUM CHLORIDE

REACTIONS (1)
  - Corneal dystrophy [None]

NARRATIVE: CASE EVENT DATE: 20160209
